FAERS Safety Report 7249169-4 (Version None)
Quarter: 2011Q1

REPORT INFORMATION
  Report Type: 
  Country: None (occurrence: None)
  Receive Date: 20110119
  Receipt Date: 20110106
  Transmission Date: 20110831
  Serious: Yes (Hospitalization)
  Sender: FDA-Public Use
  Company Number: 022818

PATIENT
  Age: 35 Year
  Sex: Male

DRUGS (9)
  1. KEPPRA [Suspect]
     Dosage: 500 MG BID, ORAL
     Route: 048
     Dates: start: 20100101, end: 20100101
  2. NELUROLEN [Concomitant]
  3. ALEVIATIN [Concomitant]
  4. PAXIL [Concomitant]
  5. PROLMON [Concomitant]
  6. GABAPENTINE [Concomitant]
  7. MYSTAN (MYSTAN) (NOT SPECIFIED) [Suspect]
     Dosage: ORAL, ORAL
     Route: 048
  8. PHENOBAL [Concomitant]
  9. VALERIN [Concomitant]

REACTIONS (2)
  - STATUS EPILEPTICUS [None]
  - CONVULSION [None]
